FAERS Safety Report 11037287 (Version 4)
Quarter: 2015Q3

REPORT INFORMATION
  Report Type: Spontaneous
  Country: US (occurrence: US)
  Receive Date: 20150416
  Receipt Date: 20150707
  Transmission Date: 20151125
  Serious: Yes (Death, Hospitalization)
  Sender: FDA-Public Use
  Company Number: US-PFIZER INC-2015124206

PATIENT
  Age: 85 Year
  Sex: Male

DRUGS (3)
  1. INLYTA [Suspect]
     Active Substance: AXITINIB
     Dosage: 3 MG, 2X/DAY (1 MG TABLETS TAKING 3 IN THE MORNING AND 3 AT THE NIGHT)
     Route: 048
  2. INLYTA [Suspect]
     Active Substance: AXITINIB
     Indication: RENAL CANCER METASTATIC
     Dosage: 5 MG, UNK
     Route: 048
     Dates: start: 2014
  3. INLYTA [Suspect]
     Active Substance: AXITINIB
     Dosage: 5 MG, 1X/DAY (2 MG AM, 3 MG PM)
     Dates: start: 201403

REACTIONS (10)
  - Urinary tract infection [Not Recovered/Not Resolved]
  - Death [Fatal]
  - Persecutory delusion [Unknown]
  - Dehydration [Not Recovered/Not Resolved]
  - Atrial fibrillation [Unknown]
  - Decreased appetite [Not Recovered/Not Resolved]
  - Hallucination [Not Recovered/Not Resolved]
  - Weight decreased [Unknown]
  - Abnormal behaviour [Unknown]
  - Diarrhoea [Not Recovered/Not Resolved]
